FAERS Safety Report 13288036 (Version 1)
Quarter: 2017Q1

REPORT INFORMATION
  Report Type: Spontaneous
  Country: GB (occurrence: GB)
  Receive Date: 20170302
  Receipt Date: 20170302
  Transmission Date: 20170428
  Serious: Yes (Life-Threatening, Hospitalization, Other)
  Sender: FDA-Public Use
  Company Number: GB-ACCORD-048584

PATIENT
  Age: 74 Year
  Sex: Female
  Weight: 81.7 kg

DRUGS (15)
  1. FOLIC ACID. [Concomitant]
     Active Substance: FOLIC ACID
  2. SOLIFENACIN/SOLIFENACIN SUCCINATE [Concomitant]
  3. ALENDRONATE SODIUM/ALENDRONIC ACID [Concomitant]
  4. CODEINE PHOSPHATE/PARACETAMOL [Concomitant]
  5. LANSOPRAZOLE. [Concomitant]
     Active Substance: LANSOPRAZOLE
  6. ACTAVIS UK METFORMIN [Concomitant]
     Active Substance: METFORMIN HYDROCHLORIDE
  7. ADCAL-D3 [Concomitant]
     Active Substance: CALCIUM CARBONATE\CHOLECALCIFEROL
  8. SULFAMETHOXAZOLE/TRIMETHOPRIM [Interacting]
     Active Substance: SULFAMETHOXAZOLE\TRIMETHOPRIM
     Indication: GRANULOMATOSIS WITH POLYANGIITIS
     Route: 048
  9. METHOTREXATE. [Suspect]
     Active Substance: METHOTREXATE
     Indication: GRANULOMATOSIS WITH POLYANGIITIS
     Route: 048
  10. ATENOLOL/ATENOLOL HYDROCHLORIDE [Concomitant]
  11. LOSARTAN. [Concomitant]
     Active Substance: LOSARTAN
  12. PREDNISOLONE. [Concomitant]
     Active Substance: PREDNISOLONE
  13. ASPIRIN. [Concomitant]
     Active Substance: ASPIRIN
  14. LEVOTHYROXINE. [Concomitant]
     Active Substance: LEVOTHYROXINE
  15. CALCITRIOL. [Concomitant]
     Active Substance: CALCITRIOL

REACTIONS (4)
  - Pancytopenia [Recovering/Resolving]
  - Neutropenic sepsis [Unknown]
  - Drug interaction [Unknown]
  - Bone marrow failure [Recovered/Resolved]
